FAERS Safety Report 6339835-7 (Version None)
Quarter: 2009Q3

REPORT INFORMATION
  Report Type: 
  Country: None (occurrence: None)
  Receive Date: 20090903
  Receipt Date: 20090901
  Transmission Date: 20100115
  Serious: Yes (Death, Life-Threatening)
  Sender: FDA-Public Use
  Company Number: PHHY2009JP37123

PATIENT
  Age: 63 Year
  Sex: Male

DRUGS (2)
  1. TASIGNA [Suspect]
     Indication: CHRONIC MYELOID LEUKAEMIA
     Dosage: 400 MG/DAY
     Route: 048
     Dates: start: 20090529, end: 20090601
  2. TASIGNA [Suspect]
     Dosage: 800 MG/DAY
     Route: 048
     Dates: start: 20090601, end: 20090601

REACTIONS (2)
  - CHRONIC MYELOID LEUKAEMIA [None]
  - PANCYTOPENIA [None]
